FAERS Safety Report 7704090-X (Version None)
Quarter: 2011Q3

REPORT INFORMATION
  Report Type: 
  Country: None (occurrence: None)
  Receive Date: 20110823
  Receipt Date: 20110822
  Transmission Date: 20111222
  Serious: Yes (Hospitalization)
  Sender: FDA-Public Use
  Company Number: US-PFIZER INC-2011194157

PATIENT
  Sex: Female
  Weight: 64 kg

DRUGS (7)
  1. LYRICA [Suspect]
     Dosage: 100 MG, 2X/DAY
     Dates: start: 20110727, end: 20110801
  2. MULTI-VITAMINS [Concomitant]
     Dosage: UNK
  3. NEXIUM [Concomitant]
     Indication: HIATUS HERNIA
     Dosage: 40 MG, DAILY
  4. LYRICA [Suspect]
     Dosage: 50 MG, 2X/DAY
     Dates: start: 20110801, end: 20110819
  5. AVALIDE [Concomitant]
     Indication: BLOOD PRESSURE ABNORMAL
     Dosage: 150/12.5MG, DAILY
  6. TRAZODONE [Concomitant]
     Indication: SLEEP DISORDER
     Dosage: 75 MG DAILY
  7. LYRICA [Suspect]
     Indication: FIBROMYALGIA
     Dosage: 50 MG DAILY
     Route: 048
     Dates: start: 20110701, end: 20110726

REACTIONS (5)
  - HYPERTENSION [None]
  - DYSPHAGIA [None]
  - PRESYNCOPE [None]
  - ANGINA PECTORIS [None]
  - THROAT TIGHTNESS [None]
